FAERS Safety Report 8326305-X (Version None)
Quarter: 2012Q2

REPORT INFORMATION
  Report Type: 
  Country: None (occurrence: None)
  Receive Date: 20120501
  Receipt Date: 20090611
  Transmission Date: 20120825
  Serious: No
  Sender: FDA-Public Use
  Company Number: US-TEVA-2009006914

PATIENT
  Sex: Male

DRUGS (1)
  1. NUVIGIL [Suspect]
     Indication: SLEEP APNOEA SYNDROME
     Dosage: 150 MILLIGRAM;
     Route: 048
     Dates: start: 20090608

REACTIONS (5)
  - INITIAL INSOMNIA [None]
  - DRUG INEFFECTIVE FOR UNAPPROVED INDICATION [None]
  - IRRITABILITY [None]
  - MOOD SWINGS [None]
  - ABNORMAL BEHAVIOUR [None]
